FAERS Safety Report 5305928-6 (Version None)
Quarter: 2007Q2

REPORT INFORMATION
  Report Type: 
  Country: None (occurrence: None)
  Receive Date: 20070424
  Receipt Date: 20070417
  Transmission Date: 20071010
  Serious: Yes (Other)
  Sender: FDA-Public Use
  Company Number: GB-GLAXOSMITHKLINE-B0467621A

PATIENT
  Age: 34 Year
  Sex: Male

DRUGS (3)
  1. KIVEXA [Suspect]
     Indication: HIV INFECTION
     Route: 065
  2. SUSTIVA [Suspect]
     Indication: HIV INFECTION
  3. SEPTRIN [Concomitant]

REACTIONS (6)
  - COUGH [None]
  - DYSPNOEA [None]
  - IMMUNE RECONSTITUTION SYNDROME [None]
  - PLEURAL EFFUSION [None]
  - PYREXIA [None]
  - TUBERCULOSIS [None]
